FAERS Safety Report 7250119-5 (Version None)
Quarter: 2011Q1

REPORT INFORMATION
  Report Type: 
  Country: None (occurrence: None)
  Receive Date: 20110128
  Receipt Date: 20110111
  Transmission Date: 20110831
  Serious: Yes (Hospitalization)
  Sender: FDA-Public Use
  Company Number: DE-BAYER-2011-003482

PATIENT
  Sex: Female
  Weight: 70 kg

DRUGS (2)
  1. SORAFENIB (RAF KINASE INHIBITOR) [Suspect]
     Indication: BREAST CANCER
     Dosage: 400 MG, QD
     Route: 048
     Dates: start: 20101102, end: 20110111
  2. PACLITAXEL [Suspect]
     Indication: BREAST CANCER
     Dosage: 135 MG ON DAY 1,8,15 Q 21 DAYS
     Route: 042
     Dates: start: 20101102, end: 20110104

REACTIONS (1)
  - SUBCUTANEOUS ABSCESS [None]
